FAERS Safety Report 13955575 (Version 2)
Quarter: 2020Q2

REPORT INFORMATION
  Report Type: Report from Study
  Country: KR (occurrence: KR)
  Receive Date: 20170911
  Receipt Date: 20200514
  Transmission Date: 20200713
  Serious: Yes (Hospitalization, Other)
  Sender: FDA-Public Use
  Company Number: KR-GLAXOSMITHKLINE-KR2017GSK138733

PATIENT
  Age: 61 Year
  Sex: Male
  Weight: 65 kg

DRUGS (9)
  1. AVAMYS [Concomitant]
     Active Substance: FLUTICASONE FUROATE
     Indication: CHRONIC SINUSITIS
     Dosage: 55 UG, QD
     Dates: start: 20150619
  2. EBASTEL [Concomitant]
     Active Substance: EBASTINE
     Indication: SEBORRHOEIC DERMATITIS
     Dosage: 10 MG, QD
     Dates: start: 20161202
  3. ROZEX (METRONIDAZOLE) [Concomitant]
     Active Substance: METRONIDAZOLE
     Indication: SEBORRHOEIC DERMATITIS
     Dosage: 1 TUBE BID
     Dates: start: 20161202
  4. LEGALON [Concomitant]
     Active Substance: DIETARY SUPPLEMENT\HERBALS\MILK THISTLE
     Indication: LIVER DISORDER
     Dosage: 1 CAPSULE BID
     Dates: start: 20131227
  5. DILATREND [Concomitant]
     Active Substance: CARVEDILOL
     Indication: ROSACEA
     Dosage: 6.25 MG, QD
     Dates: start: 20161202
  6. MINOCIN [Concomitant]
     Active Substance: MINOCYCLINE HYDROCHLORIDE
     Indication: SEBORRHOEIC DERMATITIS
     Dosage: 100 MG, QD
     Dates: start: 20161202
  7. XYZAL [Concomitant]
     Active Substance: LEVOCETIRIZINE DIHYDROCHLORIDE
     Indication: CHRONIC SINUSITIS
     Dosage: 5 MG, QD
     Route: 055
     Dates: start: 20150619
  8. URSA [Concomitant]
     Active Substance: URSODIOL
     Indication: LIVER DISORDER
     Dosage: 200 MG, BID
     Dates: start: 20131227
  9. FLUTICASONE FUROATE + VILANTEROL TRIFENATATE [Suspect]
     Active Substance: FLUTICASONE FUROATE\VILANTEROL TRIFENATATE
     Indication: ASTHMA
     Dosage: 25 MG, QD
     Route: 055
     Dates: start: 20170101

REACTIONS (1)
  - Chronic myeloid leukaemia [Not Recovered/Not Resolved]

NARRATIVE: CASE EVENT DATE: 20170421
